FAERS Safety Report 17516469 (Version 1)
Quarter: 2020Q1

REPORT INFORMATION
  Report Type: Spontaneous
  Country: US (occurrence: US)
  Receive Date: 20200227
  Receipt Date: 20200227
  Transmission Date: 20200409
  Serious: Yes (Hospitalization)
  Sender: FDA-Public Use
  Company Number: None

PATIENT
  Sex: Male

DRUGS (10)
  1. FUROSMIDE [Concomitant]
  2. LISINOPRIL. [Concomitant]
     Active Substance: LISINOPRIL
  3. METOPROL SUC [Concomitant]
  4. SILDENAFIL 20MG [Suspect]
     Active Substance: SILDENAFIL
     Indication: PULMONARY HYPERTENSION
     Route: 048
     Dates: start: 20200221
  5. ASPIRIN. [Concomitant]
     Active Substance: ASPIRIN
  6. ISOSORB MONO [Concomitant]
     Active Substance: ISOSORBIDE MONONITRATE
  7. WARFARIN [Concomitant]
     Active Substance: WARFARIN
  8. DOXYCYCL HYC [Concomitant]
  9. ATORVASTATIN [Concomitant]
     Active Substance: ATORVASTATIN
  10. HYDRALAZINE [Concomitant]
     Active Substance: HYDRALAZINE HYDROCHLORIDE

REACTIONS (2)
  - Respiratory tract infection [None]
  - Therapy cessation [None]
